FAERS Safety Report 11274094 (Version 2)
Quarter: 2015Q3

REPORT INFORMATION
  Report Type: Spontaneous
  Country: FR (occurrence: FR)
  Receive Date: 20150715
  Receipt Date: 20150724
  Transmission Date: 20151125
  Serious: Yes (Other)
  Sender: FDA-Public Use
  Company Number: FR-GLAXOSMITHKLINE-FR2015GSK100118

PATIENT
  Age: 75 Year
  Sex: Female

DRUGS (9)
  1. ZELITREX [Suspect]
     Active Substance: VALACYCLOVIR HYDROCHLORIDE
     Indication: HERPES VIRUS INFECTION
     Dosage: 500 MG, 1D
     Route: 048
  2. FLECAINE [Concomitant]
     Active Substance: FLECAINIDE
     Indication: PRODUCT USED FOR UNKNOWN INDICATION
     Dosage: UNK
     Route: 048
  3. OMEPRAZOLE. [Suspect]
     Active Substance: OMEPRAZOLE
     Indication: PRODUCT USED FOR UNKNOWN INDICATION
     Dosage: UNK
     Route: 048
     Dates: start: 201504, end: 20150704
  4. SUVEAL [Concomitant]
     Indication: NUTRITIONAL SUPPLEMENTATION
     Dosage: UNK
     Route: 048
     Dates: end: 20150704
  5. MEMOPTIC [Concomitant]
     Indication: NUTRITIONAL SUPPLEMENTATION
     Dosage: UNK
     Route: 048
     Dates: end: 20150704
  6. LIVIAL [Suspect]
     Active Substance: TIBOLONE
     Indication: HORMONE REPLACEMENT THERAPY
     Dosage: UNK
     Route: 048
     Dates: end: 20150704
  7. FLECAINE [Concomitant]
     Active Substance: FLECAINIDE
     Route: 048
  8. COVERSYL [Concomitant]
     Active Substance: PERINDOPRIL
     Indication: PRODUCT USED FOR UNKNOWN INDICATION
     Route: 048
  9. SPAGULAX [Concomitant]
     Active Substance: PLANTAGO OVATA SEED
     Indication: PRODUCT USED FOR UNKNOWN INDICATION
     Dosage: UNK
     Route: 048
     Dates: end: 20150704

REACTIONS (2)
  - Drug-induced liver injury [Recovering/Resolving]
  - Abdominal pain [Recovered/Resolved]

NARRATIVE: CASE EVENT DATE: 20150502
